FAERS Safety Report 24315359 (Version 1)
Quarter: 2024Q3

REPORT INFORMATION
  Report Type: Spontaneous
  Country: US (occurrence: US)
  Receive Date: 20240913
  Receipt Date: 20240913
  Transmission Date: 20241016
  Serious: No
  Sender: ALVOGEN
  Company Number: None

PATIENT

DRUGS (1)
  1. LISDEXAMFETAMINE [Suspect]
     Active Substance: LISDEXAMFETAMINE
     Indication: Product used for unknown indication
     Dosage: EXP. DATE: 11-DEC-2024

REACTIONS (7)
  - Impaired quality of life [Unknown]
  - Anger [Unknown]
  - Anxiety [Unknown]
  - Depression [Unknown]
  - Product availability issue [Unknown]
  - Product substitution issue [Unknown]
  - Therapeutic response decreased [Unknown]
